FAERS Safety Report 6877436-2 (Version None)
Quarter: 2010Q3

REPORT INFORMATION
  Report Type: 
  Country: None (occurrence: None)
  Receive Date: 20100727
  Receipt Date: 20091019
  Transmission Date: 20110219
  Serious: No
  Sender: FDA-Public Use
  Company Number: US-ABBOTT-09P-163-0604154-00

PATIENT
  Sex: Female
  Weight: 83.99 kg

DRUGS (5)
  1. SYNTHROID [Suspect]
     Indication: HYPOTHYROIDISM
     Dosage: VARIOUS DOSES CURRENTLY ALTNATING 162 MCG AND 175 MCG
     Dates: start: 19760101
  2. SYNTHROID [Suspect]
     Dosage: VARIOUS DOSES CURRENTLY ALTNATING 162 MCG AND 175 MCG
  3. CENTRUM [Concomitant]
     Indication: VITAMIN SUPPLEMENTATION
  4. FISH OIL [Concomitant]
     Indication: ROUTINE HEALTH MAINTENANCE
  5. ASPIRIN [Concomitant]
     Indication: CARDIOVASCULAR EVENT PROPHYLAXIS

REACTIONS (1)
  - BLOOD THYROID STIMULATING HORMONE ABNORMAL [None]
